FAERS Safety Report 9202828 (Version 1)
Quarter: 2013Q2

REPORT INFORMATION
  Report Type: Spontaneous
  Country: US (occurrence: US)
  Receive Date: 20130401
  Receipt Date: 20130401
  Transmission Date: 20140414
  Serious: No
  Sender: FDA-Public Use
  Company Number: US-009507513-1303USA010256

PATIENT
  Age: 48 Year
  Sex: Female

DRUGS (4)
  1. DULERA [Suspect]
     Indication: PLEURISY
     Dosage: 200/5 MCRG,2PUFFS, BID
     Route: 055
     Dates: start: 201212, end: 20130307
  2. FENTANYL [Concomitant]
  3. OXYCODONE [Concomitant]
  4. MAXALT [Concomitant]

REACTIONS (7)
  - Tooth deposit [Not Recovered/Not Resolved]
  - Thermal burn [Not Recovered/Not Resolved]
  - Candida infection [Unknown]
  - Toothache [Not Recovered/Not Resolved]
  - Tongue coated [Not Recovered/Not Resolved]
  - Oral infection [Not Recovered/Not Resolved]
  - Palatal disorder [Not Recovered/Not Resolved]
